FAERS Safety Report 12758794 (Version 1)
Quarter: 2016Q3

REPORT INFORMATION
  Report Type: Spontaneous
  Country: US (occurrence: US)
  Receive Date: 20160918
  Receipt Date: 20160918
  Transmission Date: 20161109
  Serious: Yes (Hospitalization, Disabling)
  Sender: FDA-Public Use
  Company Number: None

PATIENT
  Age: 84 Year
  Sex: Female
  Weight: 58.5 kg

DRUGS (6)
  1. CHLORESTEROL PILL [Concomitant]
  2. PERSERVISION VITAMIN [Concomitant]
  3. ANTI-ACID [Concomitant]
  4. VITAMIN D [Concomitant]
     Active Substance: CHOLECALCIFEROL
  5. ALENDRONATE SODIUM TABLETS, USP [Suspect]
     Active Substance: ALENDRONATE SODIUM
     Indication: OSTEOPOROSIS PROPHYLAXIS
     Dosage: OTHER STRENGTH:;OTHER DOSE:;OTHER FREQUENCY:ONCE A WEEK;OTHER ROUTE:
     Route: 048
  6. NERVE PILL [Concomitant]

REACTIONS (3)
  - Femur fracture [None]
  - Osteogenesis imperfecta [None]
  - Pain [None]

NARRATIVE: CASE EVENT DATE: 20160917
